FAERS Safety Report 10377896 (Version 2)
Quarter: 2015Q1

REPORT INFORMATION
  Report Type: Spontaneous
  Country: FR (occurrence: FR)
  Receive Date: 20140812
  Receipt Date: 20150114
  Transmission Date: 20150720
  Serious: Yes (Congenital Anomaly)
  Sender: FDA-Public Use
  Company Number: FR-NOVOPROD-418552

PATIENT
  Sex: Female
  Weight: 3.18 kg

DRUGS (8)
  1. PROPYLTHIOURACIL. [Suspect]
     Active Substance: PROPYLTHIOURACIL
     Dosage: 50 MG, BID
     Route: 064
  2. SPASFON                            /00765801/ [Concomitant]
     Active Substance: PHLOROGLUCINOL\1,3,5-TRIMETHOXYBENZENE
     Dosage: UNK
     Route: 065
  3. GAVISCON                           /00237601/ [Suspect]
     Active Substance: ALUMINUM HYDROXIDE\MAGNESIUM CARBONATE
     Dosage: UNK
     Route: 064
  4. PROPYLTHIOURACIL. [Suspect]
     Active Substance: PROPYLTHIOURACIL
     Dosage: 1 TAB, QD (ONE TABLET DAILY)
     Route: 064
  5. FURADANTINE [Suspect]
     Active Substance: NITROFURANTOIN
     Dosage: UNK
     Route: 064
  6. UTROGESTAN [Suspect]
     Active Substance: PROGESTERONE
     Dosage: UNK
     Route: 064
  7. MAGNE B6                           /00869101/ [Concomitant]
     Dosage: UNK
     Route: 065
  8. NOVORAPID [Suspect]
     Active Substance: INSULIN ASPART
     Indication: TYPE 1 DIABETES MELLITUS
     Dosage: UNK
     Route: 064
     Dates: start: 20101015

REACTIONS (4)
  - Foetal exposure during pregnancy [Recovered/Resolved]
  - Premature baby [Recovered/Resolved]
  - Intestinal atresia [Unknown]
  - Congenital hypothyroidism [Recovered/Resolved]

NARRATIVE: CASE EVENT DATE: 20101015
